FAERS Safety Report 9218981 (Version 3)
Quarter: 2013Q3

REPORT INFORMATION
  Report Type: Spontaneous
  Country: JP (occurrence: JP)
  Receive Date: 20130409
  Receipt Date: 20130718
  Transmission Date: 20140515
  Serious: Yes (Hospitalization, Other)
  Sender: FDA-Public Use
  Company Number: JP-PFIZER INC-2013108851

PATIENT
  Age: 85 Year
  Sex: Female
  Weight: 48 kg

DRUGS (3)
  1. LYRICA [Suspect]
     Indication: PAIN
     Dosage: 16 CAPSULES OF 25 MG AT ONE TIME
     Dates: start: 20130305
  2. LYRICA [Suspect]
     Dosage: 25 MG, 1X/DAY
     Route: 048
     Dates: start: 20130308
  3. EXELON [Concomitant]
     Dosage: 4.5 MG, 1X/DAY
     Route: 062

REACTIONS (5)
  - Overdose [Recovered/Resolved]
  - Somnolence [Recovering/Resolving]
  - Blood creatine phosphokinase increased [Recovering/Resolving]
  - Pyrexia [Recovered/Resolved]
  - Decreased appetite [Recovering/Resolving]
